FAERS Safety Report 5744418-3 (Version None)
Quarter: 2008Q2

REPORT INFORMATION
  Report Type: 
  Country: None (occurrence: None)
  Receive Date: 20080520
  Receipt Date: 20080508
  Transmission Date: 20081010
  Serious: Yes (Hospitalization, Other)
  Sender: FDA-Public Use
  Company Number: US-JNJFOC-20070405627

PATIENT
  Sex: Female

DRUGS (7)
  1. ORTHO EVRA [Suspect]
     Indication: DRUG USE FOR UNKNOWN INDICATION
     Route: 062
  2. PROZAC [Concomitant]
  3. WELLBUTRIN [Concomitant]
  4. ADDERALL XR 10 [Concomitant]
  5. MEPERGAN FORTIS [Concomitant]
  6. DEMEROL [Concomitant]
  7. DARVOCET [Concomitant]

REACTIONS (3)
  - DEEP VEIN THROMBOSIS [None]
  - PULMONARY EMBOLISM [None]
  - THROMBOPHLEBITIS SUPERFICIAL [None]
